FAERS Safety Report 16962440 (Version 1)
Quarter: 2019Q4

REPORT INFORMATION
  Report Type: Spontaneous
  Country: US (occurrence: US)
  Receive Date: 20191025
  Receipt Date: 20191025
  Transmission Date: 20200122
  Serious: Yes (Other)
  Sender: FDA-Public Use
  Company Number: None

PATIENT
  Age: 71 Year
  Sex: Female
  Weight: 56.25 kg

DRUGS (11)
  1. SYNTRHOID [Concomitant]
  2. PREMARIN CREAM [Concomitant]
  3. CALCIUM-MAGNESIUM CITRATE [Concomitant]
  4. TIMOLOL MALLET OP [Concomitant]
  5. LUMIGAN [Concomitant]
     Active Substance: BIMATOPROST
  6. RANITIDINE. [Suspect]
     Active Substance: RANITIDINE
     Indication: GASTROINTESTINAL DISORDER
     Dosage: ?          QUANTITY:1 TABLET(S);OTHER ROUTE:BY MOUTH?
     Dates: start: 20190802, end: 20190913
  7. ACYCLOVIR. [Concomitant]
     Active Substance: ACYCLOVIR
  8. PRESERVISION [Concomitant]
     Active Substance: MINERALS\VITAMINS
  9. FISH OIL [Concomitant]
     Active Substance: FISH OIL
  10. OMEGA 3 [Concomitant]
     Active Substance: OMEGA-3 FATTY ACIDS
  11. VITAMIN D3 [Concomitant]
     Active Substance: CHOLECALCIFEROL

REACTIONS (2)
  - Product contamination [None]
  - Hepatic enzyme increased [None]

NARRATIVE: CASE EVENT DATE: 20190903
